FAERS Safety Report 8529818-0 (Version None)
Quarter: 2012Q3

REPORT INFORMATION
  Report Type: 
  Country: None (occurrence: None)
  Receive Date: 20120710
  Receipt Date: 20120627
  Transmission Date: 20120928
  Serious: Yes (Other)
  Sender: FDA-Public Use
  Company Number: FK201201806

PATIENT
  Age: 12 Month
  Sex: Male

DRUGS (6)
  1. FUROSEMIDE [Suspect]
     Indication: BLOOD PRESSURE
     Dosage: 0.5MG/KG/D ; 2MG/KG, INTRAVENOUS (NOT OTHERWISE SPECIFIED)
     Route: 042
  2. AMLODIPINE [Concomitant]
  3. HYDROCHLOROTHIAZIDE [Concomitant]
  4. SODIUM POLYSTYRENE SULPHONATE (SODIUM POLYSTYRENE SULFONATE) [Concomitant]
  5. ATENOLOL [Concomitant]
  6. MISOPROSTOL [Concomitant]

REACTIONS (3)
  - DEHYDRATION [None]
  - DRUG INEFFECTIVE [None]
  - RENAL FAILURE CHRONIC [None]
